FAERS Safety Report 24738626 (Version 1)
Quarter: 2024Q4

REPORT INFORMATION
  Report Type: Spontaneous
  Country: US (occurrence: US)
  Receive Date: 20241216
  Receipt Date: 20241216
  Transmission Date: 20250114
  Serious: No
  Sender: AMGEN
  Company Number: US-AMGEN-USASP2024244767

PATIENT
  Age: 51 Year
  Sex: Female

DRUGS (4)
  1. EVOLOCUMAB [Suspect]
     Active Substance: EVOLOCUMAB
     Indication: Lysosomal acid lipase deficiency
     Dosage: 140 MILLIGRAM, Q2WK
     Route: 065
  2. ATORVASTATIN [Concomitant]
     Active Substance: ATORVASTATIN
     Indication: Lysosomal acid lipase deficiency
     Dosage: 80 MILLIGRAM, QD
     Route: 065
  3. EZETIMIBE [Concomitant]
     Active Substance: EZETIMIBE
     Indication: Lysosomal acid lipase deficiency
     Dosage: 10 MILLIGRAM, QD
     Route: 065
  4. SEBELIPASE ALFA [Concomitant]
     Active Substance: SEBELIPASE ALFA
     Indication: Lysosomal acid lipase deficiency
     Dosage: 1 MILLIGRAM/KILOGRAM, Q2WK
     Route: 040

REACTIONS (4)
  - Hepatic steatosis [Unknown]
  - Hepatomegaly [Unknown]
  - Lysosomal acid lipase deficiency [Unknown]
  - Off label use [Unknown]
